FAERS Safety Report 7958205-9 (Version None)
Quarter: 2011Q4

REPORT INFORMATION
  Report Type: 
  Country: None (occurrence: None)
  Receive Date: 20111205
  Receipt Date: 20111130
  Transmission Date: 20120403
  Serious: Yes (Hospitalization)
  Sender: FDA-Public Use
  Company Number: FR-PFIZER INC-2011291622

PATIENT
  Age: 75 Year
  Sex: Female

DRUGS (10)
  1. METFORMIN HYDROCHLORIDE [Concomitant]
     Dosage: UNK
  2. CLONAZEPAM [Concomitant]
     Dosage: UNK
  3. FUROSEMIDE [Suspect]
     Dosage: 60 MG, DAILY
     Route: 048
  4. ASPIRIN [Concomitant]
     Dosage: UNK
  5. ALDACTONE [Suspect]
     Dosage: UNK
     Route: 048
  6. RAMIPRIL [Suspect]
     Dosage: UNK
     Route: 048
  7. NEXEN [Suspect]
     Dosage: UNK
     Route: 048
  8. REPAGLINIDE [Concomitant]
     Dosage: UNK
  9. SIMVASTATIN [Concomitant]
     Dosage: UNK
  10. DILTIAZEM [Suspect]
     Dosage: UNK
     Route: 048

REACTIONS (3)
  - HYPERKALAEMIA [None]
  - RENAL FAILURE ACUTE [None]
  - RENAL TUBULAR NECROSIS [None]
